FAERS Safety Report 20206024 (Version 1)
Quarter: 2021Q4

REPORT INFORMATION
  Report Type: Spontaneous
  Country: TR (occurrence: TR)
  Receive Date: 20211220
  Receipt Date: 20211220
  Transmission Date: 20220303
  Serious: Yes (Hospitalization, Other)
  Sender: FDA-Public Use
  Company Number: TR-MACLEODS PHARMACEUTICALS US LTD-MAC2021033736

PATIENT

DRUGS (1)
  1. LIDOCAINE 5% [Suspect]
     Active Substance: LIDOCAINE
     Indication: Myofascial pain syndrome
     Dosage: 0.5 % (INJECTED INTO THE 8 TRIGGER POINTS OF THE RIGHT TRAPEZIUS MUSCLE))
     Route: 051

REACTIONS (6)
  - Ischaemic stroke [Recovered/Resolved]
  - Hemianopia [Recovered/Resolved]
  - Central nervous system lesion [Recovered/Resolved]
  - Extensor plantar response [Recovered/Resolved]
  - Hypoaesthesia [Recovered/Resolved]
  - Dizziness [Recovered/Resolved]
